FAERS Safety Report 7981766-0 (Version None)
Quarter: 2011Q4

REPORT INFORMATION
  Report Type: 
  Country: None (occurrence: None)
  Receive Date: 20111213
  Receipt Date: 20111130
  Transmission Date: 20120403
  Serious: Yes (Other)
  Sender: FDA-Public Use
  Company Number: 2011P1009500

PATIENT
  Age: 89 Year
  Sex: Male
  Weight: 70.3075 kg

DRUGS (13)
  1. VICODIN [Concomitant]
  2. DILTIAZEM HCL [Concomitant]
  3. OMEGA [Concomitant]
  4. CALCIUM WITH VITAMIN D3 [Concomitant]
  5. NITROGLYCERIN SL [Concomitant]
  6. WARFARIN SODIUM [Suspect]
     Indication: ATRIAL FIBRILLATION
     Dosage: 5 MG; QD; PO, 10 MG; QD; PO, 5 MG; QD; PO, 5 MG; 5 DAYS/WK; PO, 2.5 MG; 2 DAYS/WK; PO
     Route: 048
     Dates: start: 20110914, end: 20111012
  7. WARFARIN SODIUM [Suspect]
     Indication: ATRIAL FIBRILLATION
     Dosage: 5 MG; QD; PO, 10 MG; QD; PO, 5 MG; QD; PO, 5 MG; 5 DAYS/WK; PO, 2.5 MG; 2 DAYS/WK; PO
     Route: 048
     Dates: start: 20111013, end: 20111102
  8. WARFARIN SODIUM [Suspect]
     Indication: ATRIAL FIBRILLATION
     Dosage: 5 MG; QD; PO, 10 MG; QD; PO, 5 MG; QD; PO, 5 MG; 5 DAYS/WK; PO, 2.5 MG; 2 DAYS/WK; PO
     Route: 048
     Dates: start: 20110725, end: 20110913
  9. WARFARIN SODIUM [Suspect]
     Indication: ATRIAL FIBRILLATION
     Dosage: 5 MG; QD; PO, 10 MG; QD; PO, 5 MG; QD; PO, 5 MG; 5 DAYS/WK; PO, 2.5 MG; 2 DAYS/WK; PO
     Route: 048
     Dates: start: 20111103
  10. WARFARIN SODIUM [Suspect]
     Indication: ATRIAL FIBRILLATION
     Dosage: 5 MG; QD; PO, 10 MG; QD; PO, 5 MG; QD; PO, 5 MG; 5 DAYS/WK; PO, 2.5 MG; 2 DAYS/WK; PO
     Route: 048
     Dates: start: 20111103
  11. ISOSORBIDE DINITRATE [Concomitant]
  12. MAGNESIUM [Concomitant]
  13. FISH OIL [Concomitant]

REACTIONS (21)
  - CONSTIPATION [None]
  - HYPERTENSION [None]
  - PAIN IN EXTREMITY [None]
  - INSOMNIA [None]
  - INTERNATIONAL NORMALISED RATIO INCREASED [None]
  - AGITATION [None]
  - DIZZINESS [None]
  - ECCHYMOSIS [None]
  - EPISTAXIS [None]
  - HEART RATE IRREGULAR [None]
  - HAEMOPTYSIS [None]
  - SOFT TISSUE HAEMORRHAGE [None]
  - CARDIOMEGALY [None]
  - MOUTH HAEMORRHAGE [None]
  - CONTUSION [None]
  - ANXIETY [None]
  - ANAEMIA [None]
  - ACCIDENTAL OVERDOSE [None]
  - ARTHRITIS [None]
  - JOINT SWELLING [None]
  - ARTHRALGIA [None]
